FAERS Safety Report 9284543 (Version 1)
Quarter: 2013Q2

REPORT INFORMATION
  Report Type: Report from Study
  Country: CA (occurrence: CA)
  Receive Date: 20130511
  Receipt Date: 20130511
  Transmission Date: 20140414
  Serious: Yes (Other)
  Sender: FDA-Public Use
  Company Number: CA-UCBSA-085313

PATIENT
  Sex: Male
  Weight: 75.8 kg

DRUGS (7)
  1. CIMZIA [Suspect]
     Indication: RHEUMATOID ARTHRITIS
     Dosage: FOR 3 WEEKS
     Route: 058
     Dates: start: 20130114, end: 201302
  2. CIMZIA [Suspect]
     Indication: RHEUMATOID ARTHRITIS
     Route: 058
     Dates: start: 20130225, end: 20130408
  3. RAMIPRIL [Concomitant]
  4. SIMVASTATIN [Concomitant]
  5. LIPITOR [Concomitant]
  6. PENTALOC [Concomitant]
  7. PREDNISONE [Concomitant]
     Indication: RHEUMATOID ARTHRITIS
     Dates: end: 2013

REACTIONS (2)
  - Rash generalised [Unknown]
  - Stomatitis [Unknown]
